FAERS Safety Report 8605716-9 (Version None)
Quarter: 2012Q3

REPORT INFORMATION
  Report Type: 
  Country: None (occurrence: None)
  Receive Date: 20120820
  Receipt Date: 20120806
  Transmission Date: 20120928
  Serious: Yes (Congenital Anomaly)
  Sender: FDA-Public Use
  Company Number: US-MYLANLABS-2012S1016183

PATIENT

DRUGS (2)
  1. METHOTREXATE [Suspect]
     Indication: ECTOPIC PREGNANCY
     Route: 030
     Dates: start: 20110104, end: 20110104
  2. FOLIC ACID [Concomitant]
     Route: 064

REACTIONS (8)
  - NEURAL TUBE DEFECT [None]
  - HYDROCEPHALUS [None]
  - NECK DEFORMITY [None]
  - HEAD DEFORMITY [None]
  - ARNOLD-CHIARI MALFORMATION [None]
  - TERATOGENICITY [None]
  - TALIPES [None]
  - MATERNAL EXPOSURE BEFORE PREGNANCY [None]
